FAERS Safety Report 5260497-4 (Version None)
Quarter: 2007Q1

REPORT INFORMATION
  Report Type: 
  Country: None (occurrence: None)
  Receive Date: 20070309
  Receipt Date: 20061005
  Transmission Date: 20070707
  Serious: No
  Sender: FDA-Public Use
  Company Number: US-GLAXOSMITHKLINE-A0622456A

PATIENT
  Age: 46 Year
  Sex: Female

DRUGS (1)
  1. NICORETTE [Suspect]
     Dates: start: 20061001

REACTIONS (2)
  - DRUG INEFFECTIVE [None]
  - NICOTINE DEPENDENCE [None]
